FAERS Safety Report 21068704 (Version 1)
Quarter: 2022Q3

REPORT INFORMATION
  Report Type: Spontaneous
  Country: US (occurrence: None)
  Receive Date: 20220711
  Receipt Date: 20220711
  Transmission Date: 20221027
  Serious: Yes (Hospitalization)
  Sender: FDA-Public Use
  Company Number: None

PATIENT
  Age: 62 Year
  Sex: Female

DRUGS (1)
  1. AVONEX [Suspect]
     Active Substance: INTERFERON BETA-1A
     Indication: Multiple sclerosis
     Dosage: 30MCG ONCE A WEEK INTRAMUSCULAR?
     Route: 030
     Dates: start: 20210401

REACTIONS (1)
  - Hypertension [None]

NARRATIVE: CASE EVENT DATE: 20220701
